FAERS Safety Report 21261429 (Version 4)
Quarter: 2022Q3

REPORT INFORMATION
  Report Type: Spontaneous
  Country: US (occurrence: US)
  Receive Date: 20220827
  Receipt Date: 20220914
  Transmission Date: 20221026
  Serious: Yes (Other)
  Sender: FDA-Public Use
  Company Number: US-SANOFI-01245201

PATIENT
  Age: 66 Year
  Sex: Male

DRUGS (2)
  1. LANTUS SOLOSTAR [Suspect]
     Active Substance: INSULIN GLARGINE
     Indication: Diabetes mellitus
     Dosage: 42 U, QD
  2. LANTUS SOLOSTAR [Suspect]
     Active Substance: INSULIN GLARGINE
     Dosage: 16 IU, BID

REACTIONS (9)
  - Ischaemic stroke [Unknown]
  - Haemorrhagic stroke [Unknown]
  - Gait inability [Unknown]
  - Dizziness [Unknown]
  - Anal incontinence [Unknown]
  - Somnolence [Unknown]
  - Blood glucose fluctuation [Recovering/Resolving]
  - Product prescribing issue [Unknown]
  - Inappropriate schedule of product administration [Unknown]

NARRATIVE: CASE EVENT DATE: 20200601
